FAERS Safety Report 23382048 (Version 1)
Quarter: 2024Q1

REPORT INFORMATION
  Report Type: Spontaneous
  Country: US (occurrence: None)
  Receive Date: 20240108
  Receipt Date: 20240108
  Transmission Date: 20240410
  Serious: No
  Sender: FDA-Public Use
  Company Number: None

PATIENT
  Age: 62 Year
  Sex: Male
  Weight: 72 kg

DRUGS (5)
  1. BUPRENORPHINE [Suspect]
     Active Substance: BUPRENORPHINE
     Indication: Pain
     Dates: start: 20231209, end: 20231209
  2. NORCO [Concomitant]
     Active Substance: ACETAMINOPHEN\HYDROCODONE BITARTRATE
  3. ROCKLATAN [Concomitant]
     Active Substance: LATANOPROST\NETARSUDIL MESYLATE
  4. Dorzolamide HCI [Concomitant]
  5. TIMOLOL MALEATE [Concomitant]
     Active Substance: TIMOLOL MALEATE

REACTIONS (10)
  - Pain [None]
  - Dizziness [None]
  - Thirst [None]
  - Dizziness [None]
  - Nausea [None]
  - Amnesia [None]
  - Vomiting [None]
  - Delirium [None]
  - Headache [None]
  - Hyperhidrosis [None]

NARRATIVE: CASE EVENT DATE: 20231209
